FAERS Safety Report 6099898-3 (Version None)
Quarter: 2009Q1

REPORT INFORMATION
  Report Type: 
  Country: None (occurrence: None)
  Receive Date: 20090303
  Receipt Date: 20090302
  Transmission Date: 20090719
  Serious: Yes (Other)
  Sender: FDA-Public Use
  Company Number: A0769952A

PATIENT

DRUGS (2)
  1. ALLI [Suspect]
     Indication: WEIGHT LOSS DIET
     Route: 048
  2. FIBER SUPPLEMENT [Suspect]
     Indication: SUPPLEMENTATION THERAPY
     Route: 065

REACTIONS (4)
  - ADVERSE EVENT [None]
  - ATRIAL FIBRILLATION [None]
  - OSTEOARTHRITIS [None]
  - VENTRICULAR EXTRASYSTOLES [None]
